FAERS Safety Report 5058565-5 (Version None)
Quarter: 2006Q2

REPORT INFORMATION
  Report Type: 
  Country: None (occurrence: None)
  Receive Date: 20060627
  Receipt Date: 20060112
  Transmission Date: 20061013
  Serious: Yes (Hospitalization)
  Sender: FDA-Public Use
  Company Number: 432579

PATIENT
  Age: 61 Year
  Sex: Male

DRUGS (4)
  1. XELODA [Suspect]
     Indication: PROSTATE CANCER
     Dosage: 1000 MG/M2 2 PER DAY ORAL
     Route: 048
     Dates: start: 20051020
  2. IROFLUVEN (HYDOXYMETHYL ACYLFULVENE) [Suspect]
     Indication: PROSTATE CANCER
     Dosage: 0.4 MG/KG 2 PER 4 WEEK INTRAVENOUS
     Route: 042
     Dates: start: 20051020
  3. DEXAMETHASONE TAB [Concomitant]
  4. ACETAMINOPHEN [Concomitant]

REACTIONS (1)
  - THROMBOCYTOPENIA [None]
